FAERS Safety Report 8500070-5 (Version None)
Quarter: 2012Q3

REPORT INFORMATION
  Report Type: 
  Country: None (occurrence: None)
  Receive Date: 20120710
  Receipt Date: 20120703
  Transmission Date: 20120928
  Serious: Yes (Other)
  Sender: FDA-Public Use
  Company Number: US-BAYER-2012-067710

PATIENT
  Age: 24 Year
  Sex: Female

DRUGS (2)
  1. DROSPIRENONE AND ETHINYL ESTRADIOL [Suspect]
     Dosage: UNK
     Dates: start: 20100601, end: 20110701
  2. YAZ [Suspect]
     Dosage: UNK
     Dates: start: 20100401, end: 20100601

REACTIONS (1)
  - THROMBOPHLEBITIS SUPERFICIAL [None]
